FAERS Safety Report 5075188-2 (Version None)
Quarter: 2006Q3

REPORT INFORMATION
  Report Type: 
  Country: None (occurrence: None)
  Receive Date: 20060803
  Receipt Date: 20060803
  Transmission Date: 20061208
  Serious: Yes (Hospitalization)
  Sender: FDA-Public Use
  Company Number: None

PATIENT
  Sex: Female
  Weight: 72.6 kg

DRUGS (1)
  1. SPRYCEL [Suspect]
     Indication: CHRONIC MYELOID LEUKAEMIA
     Dosage: 70 MG DAILY PO
     Route: 048
     Dates: start: 20060723, end: 20060801

REACTIONS (3)
  - COUGH [None]
  - LOBAR PNEUMONIA [None]
  - PLEURAL EFFUSION [None]
